FAERS Safety Report 21105641 (Version 1)
Quarter: 2022Q3

REPORT INFORMATION
  Report Type: Spontaneous
  Country: JP (occurrence: JP)
  Receive Date: 20220720
  Receipt Date: 20220720
  Transmission Date: 20221027
  Serious: Yes (Other)
  Sender: FDA-Public Use
  Company Number: JP-TAKEDA-2022TJP054603

PATIENT
  Age: 66 Year
  Sex: Male
  Weight: 79.6 kg

DRUGS (5)
  1. CABOMETYX [Suspect]
     Active Substance: CABOZANTINIB S-MALATE
     Indication: Renal cancer
     Dosage: 40 MG, QD
     Route: 048
     Dates: start: 20220314, end: 20220519
  2. CABOMETYX [Suspect]
     Active Substance: CABOZANTINIB S-MALATE
     Dosage: 20 MG, QD
     Route: 048
     Dates: start: 20220520
  3. URSODIOL [Concomitant]
     Active Substance: URSODIOL
     Indication: Product used for unknown indication
     Dosage: 50 MG, TID
     Route: 048
     Dates: start: 20220204
  4. REBAMIPIDE [Concomitant]
     Active Substance: REBAMIPIDE
     Indication: Ulcer
     Dosage: 100 MG, TID
     Route: 048
     Dates: start: 20220314
  5. OLMESARTAN [Concomitant]
     Active Substance: OLMESARTAN
     Indication: Hypertension
     Dosage: 10 MG, QD
     Route: 048
     Dates: start: 20220328

REACTIONS (3)
  - Liver disorder [Recovering/Resolving]
  - Hypertension [Recovering/Resolving]
  - Stomatitis [Unknown]

NARRATIVE: CASE EVENT DATE: 20220520
